FAERS Safety Report 20700087 (Version 1)
Quarter: 2022Q2

REPORT INFORMATION
  Report Type: Spontaneous
  Country: US (occurrence: None)
  Receive Date: 20220412
  Receipt Date: 20220412
  Transmission Date: 20220720
  Serious: Yes (Other)
  Sender: FDA-Public Use
  Company Number: None

PATIENT
  Sex: Female

DRUGS (5)
  1. CROMOLYN SODIUM [Suspect]
     Active Substance: CROMOLYN SODIUM
     Indication: Mast cell activation syndrome
     Route: 048
  2. vitamin B12 supplement [Concomitant]
  3. PROPRANOLOL [Concomitant]
     Active Substance: PROPRANOLOL HYDROCHLORIDE
  4. QUERCETIN [Concomitant]
     Active Substance: QUERCETIN
  5. PYRIDOSTIGMINE [Concomitant]
     Active Substance: PYRIDOSTIGMINE

REACTIONS (5)
  - Mast cell activation syndrome [Unknown]
  - Condition aggravated [Unknown]
  - Tongue discomfort [Unknown]
  - Throat tightness [Unknown]
  - Swelling face [Unknown]
